FAERS Safety Report 12060705 (Version 2)
Quarter: 2016Q1

REPORT INFORMATION
  Report Type: Spontaneous
  Country: IT (occurrence: IT)
  Receive Date: 20160210
  Receipt Date: 20160216
  Transmission Date: 20160526
  Serious: Yes (Hospitalization, Other)
  Sender: FDA-Public Use
  Company Number: IT-PFIZER INC-2016066308

PATIENT
  Age: 4 Year
  Sex: Female
  Weight: 14 kg

DRUGS (8)
  1. ENAPREN [Concomitant]
     Active Substance: ENALAPRIL MALEATE
     Dosage: 1.25 MG, UNK
     Route: 048
  2. FASTURTEC [Concomitant]
     Active Substance: RASBURICASE
  3. ADRIBLASTINA [Suspect]
     Active Substance: DOXORUBICIN HYDROCHLORIDE
     Indication: RENAL CANCER METASTATIC
     Dosage: 24 MG, CYCLIC
     Route: 042
     Dates: start: 20150917, end: 20151028
  4. VINCRISTINE SULFATE. [Suspect]
     Active Substance: VINCRISTINE SULFATE
     Indication: RENAL CANCER METASTATIC
     Dosage: 0.9 MG, CYCLIC
     Route: 042
     Dates: start: 20150917, end: 20151028
  5. DILATREND [Concomitant]
     Active Substance: CARVEDILOL
     Dosage: 1 MG, UNK
  6. ZOFRAN [Concomitant]
     Active Substance: ONDANSETRON HYDROCHLORIDE
  7. ANTRA /00661201/ [Concomitant]
     Active Substance: OMEPRAZOLE
  8. DACTINOMYCIN [Suspect]
     Active Substance: DACTINOMYCIN
     Indication: RENAL CANCER METASTATIC
     Dosage: 0.8 MG, CYCLIC
     Route: 042
     Dates: start: 20150917, end: 20151028

REACTIONS (5)
  - Hyperbilirubinaemia [Recovered/Resolved]
  - General physical health deterioration [Recovered/Resolved]
  - Ascites [Recovered/Resolved]
  - Transaminases increased [Recovered/Resolved]
  - Product use issue [Unknown]

NARRATIVE: CASE EVENT DATE: 20151029
